FAERS Safety Report 6209175-5 (Version None)
Quarter: 2009Q2

REPORT INFORMATION
  Report Type: 
  Country: None (occurrence: None)
  Receive Date: 20090522
  Receipt Date: 20090317
  Transmission Date: 20091009
  Serious: No
  Sender: FDA-Public Use
  Company Number: 8044119

PATIENT
  Age: 48 Year
  Sex: Male
  Weight: 86.3 kg

DRUGS (5)
  1. CIMZIA [Suspect]
     Indication: CROHN'S DISEASE
     Dosage: 400 MG SC
     Route: 058
     Dates: start: 20090303
  2. SYSTOLIC [Concomitant]
  3. HYDROCHLOROTHIAZIDE [Concomitant]
  4. LOMOTIL [Concomitant]
  5. BUPROPION HCL [Concomitant]

REACTIONS (1)
  - THROAT TIGHTNESS [None]
